FAERS Safety Report 25286007 (Version 3)
Quarter: 2025Q3

REPORT INFORMATION
  Report Type: Spontaneous
  Country: JP (occurrence: JP)
  Receive Date: 20250509
  Receipt Date: 20250916
  Transmission Date: 20251020
  Serious: Yes (Hospitalization, Other)
  Sender: GLAXOSMITHKLINE
  Company Number: JP-GSKJP-JP2025JPN043384AA

PATIENT
  Age: 79 Year
  Sex: Male

DRUGS (12)
  1. DAPRODUSTAT [Suspect]
     Active Substance: DAPRODUSTAT
     Indication: Nephrogenic anaemia
  2. ASPIRIN [Concomitant]
     Active Substance: ASPIRIN
  3. ATORVASTATIN [Concomitant]
     Active Substance: ATORVASTATIN
  4. SPIRONOLACTONE [Concomitant]
     Active Substance: SPIRONOLACTONE
  5. BIO-THREE [Concomitant]
     Active Substance: HERBALS
  6. FEBUXOSTAT [Concomitant]
     Active Substance: FEBUXOSTAT
  7. LANSOPRAZOLE [Concomitant]
     Active Substance: LANSOPRAZOLE
  8. CARVEDILOL [Concomitant]
     Active Substance: CARVEDILOL
  9. SODIUM FERROUS CITRATE [Concomitant]
     Active Substance: SODIUM FERROUS CITRATE
  10. FOLIC ACID [Concomitant]
     Active Substance: FOLIC ACID
  11. FUROSEMIDE [Concomitant]
     Active Substance: FUROSEMIDE
  12. GLYCOSAMINOGLYCANS [Concomitant]
     Active Substance: GLYCOSAMINOGLYCANS

REACTIONS (8)
  - Cardiac disorder [Unknown]
  - Chronic kidney disease [Unknown]
  - Colon cancer [Unknown]
  - Tumour haemorrhage [Unknown]
  - Nephrogenic anaemia [Recovered/Resolved]
  - Hypertension [Unknown]
  - Dyslipidaemia [Unknown]
  - Haemoglobin decreased [Unknown]

NARRATIVE: CASE EVENT DATE: 20250401
